FAERS Safety Report 26046190 (Version 1)
Quarter: 2025Q4

REPORT INFORMATION
  Report Type: Spontaneous
  Country: JP (occurrence: JP)
  Receive Date: 20251114
  Receipt Date: 20251114
  Transmission Date: 20260118
  Serious: Yes (Hospitalization)
  Sender: ALEXION PHARMACEUTICALS
  Company Number: JP-ASTRAZENECA-202511JPN007193JP

PATIENT
  Age: 38 Year
  Sex: Male
  Weight: 64.3 kg

DRUGS (1)
  1. LOKELMA [Suspect]
     Active Substance: SODIUM ZIRCONIUM CYCLOSILICATE
     Indication: Hyperkalaemia
     Dosage: 10 GRAM, TID
     Dates: start: 20251103, end: 20251103

REACTIONS (1)
  - Pneumatosis intestinalis [Not Recovered/Not Resolved]
